FAERS Safety Report 15685033 (Version 1)
Quarter: 2018Q4

REPORT INFORMATION
  Report Type: Report from Study
  Country: CO (occurrence: CO)
  Receive Date: 20181204
  Receipt Date: 20181204
  Transmission Date: 20190205
  Serious: Yes (Other)
  Sender: FDA-Public Use
  Company Number: CO-ROCHE-2188109

PATIENT
  Age: 42 Year
  Sex: Female
  Weight: 58 kg

DRUGS (1)
  1. XOLAIR [Suspect]
     Active Substance: OMALIZUMAB
     Indication: ASTHMA
     Route: 058
     Dates: start: 201806, end: 201807

REACTIONS (16)
  - Respiratory failure [Recovered/Resolved]
  - Asthmatic crisis [Recovered/Resolved]
  - Abdominal pain upper [Recovering/Resolving]
  - Sense of oppression [Recovering/Resolving]
  - Respiratory rate increased [Recovered/Resolved]
  - Pain [Recovered/Resolved]
  - Blood pressure diastolic decreased [Recovering/Resolving]
  - Nausea [Recovering/Resolving]
  - Anaphylactic shock [Unknown]
  - Heart rate increased [Recovered/Resolved]
  - Headache [Recovered/Resolved]
  - Vomiting [Recovered/Resolved]
  - Hypersensitivity [Recovered/Resolved]
  - Tachypnoea [Recovering/Resolving]
  - Wheezing [Recovering/Resolving]
  - Vomiting [Recovering/Resolving]

NARRATIVE: CASE EVENT DATE: 201806
